FAERS Safety Report 9665848 (Version 1)
Quarter: 2013Q4

REPORT INFORMATION
  Report Type: Spontaneous
  Country: US (occurrence: None)
  Receive Date: 20131031
  Receipt Date: 20131031
  Transmission Date: 20140711
  Serious: Yes (Other)
  Sender: FDA-Public Use
  Company Number: None

PATIENT
  Age: 51 Year
  Sex: Female
  Weight: 65.77 kg

DRUGS (4)
  1. METHSCOPOLAMINE [Suspect]
     Indication: IRRITABLE BOWEL SYNDROME
     Dosage: 5 MG I ONLY TOOK 1 A DAY + 1 A DAY, TWICE A DAY AND ONLY TOOK A DAY BY MOUTH
     Route: 048
     Dates: start: 20130525, end: 20130930
  2. ESTRACE [Concomitant]
  3. ATENOLOL [Concomitant]
  4. CHLORTHALIDONE [Concomitant]

REACTIONS (5)
  - Vision blurred [None]
  - Dry mouth [None]
  - Headache [None]
  - Diabetes mellitus [None]
  - Product substitution issue [None]
